FAERS Safety Report 8653623 (Version 2)
Quarter: 2015Q3

REPORT INFORMATION
  Report Type: Spontaneous
  Country: US (occurrence: US)
  Receive Date: 20120709
  Receipt Date: 20150728
  Transmission Date: 20151125
  Serious: Yes (Hospitalization)
  Sender: FDA-Public Use
  Company Number: US-ELI_LILLY_AND_COMPANY-US201206008771

PATIENT
  Age: 71 Year
  Sex: Female

DRUGS (5)
  1. HUMALOG [Concomitant]
     Active Substance: INSULIN LISPRO
     Indication: DIABETES MELLITUS
  2. VICTOZA [Concomitant]
     Active Substance: LIRAGLUTIDE
  3. LANTUS [Concomitant]
     Active Substance: INSULIN GLARGINE
  4. LEVEMIR [Concomitant]
     Active Substance: INSULIN DETEMIR
  5. HUMALOG [Suspect]
     Active Substance: INSULIN LISPRO
     Indication: DIABETES MELLITUS
     Dosage: 60 U, TID
     Route: 065
     Dates: start: 201006

REACTIONS (8)
  - Fall [Unknown]
  - Infection [Unknown]
  - Foot fracture [Unknown]
  - Nail avulsion [Unknown]
  - Hand fracture [Unknown]
  - Nail infection [Unknown]
  - Macular degeneration [Not Recovered/Not Resolved]
  - Rash papular [Unknown]

NARRATIVE: CASE EVENT DATE: 2011
